FAERS Safety Report 17599375 (Version 1)
Quarter: 2020Q1

REPORT INFORMATION
  Report Type: Spontaneous
  Country: US (occurrence: US)
  Receive Date: 20200330
  Receipt Date: 20200330
  Transmission Date: 20200409
  Serious: Yes (Other)
  Sender: FDA-Public Use
  Company Number: US-SPECGX-T201907290

PATIENT
  Age: 38 Year
  Sex: Female

DRUGS (13)
  1. LAMICTAL [Suspect]
     Active Substance: LAMOTRIGINE
     Dosage: TAPER BY  6.25  MG  EVERY 2 WEEKS
     Route: 065
     Dates: start: 201703, end: 20170601
  2. LAMICTAL [Suspect]
     Active Substance: LAMOTRIGINE
     Indication: DEPRESSED MOOD
     Dosage: 25 MILLIGRAM
     Route: 065
     Dates: start: 20130917, end: 201309
  3. LAMICTAL [Suspect]
     Active Substance: LAMOTRIGINE
     Dosage: UNK
  4. RESTORIL [Suspect]
     Active Substance: TEMAZEPAM
     Dosage: TAPERED, DOWN TO 10 MG OF RESTORIL, BY 1 MG EVERY 1-3 WEEKS
     Route: 065
     Dates: start: 201801, end: 201804
  5. KLONOPIN [Suspect]
     Active Substance: CLONAZEPAM
     Dosage: 1 MILLIGRAM
     Route: 065
     Dates: start: 201310, end: 201607
  6. RESTORIL [Suspect]
     Active Substance: TEMAZEPAM
     Indication: SLEEP DISORDER
     Dosage: 15 MILLIGRAM, QHS
     Route: 065
     Dates: start: 20131016
  7. LAMICTAL [Suspect]
     Active Substance: LAMOTRIGINE
     Dosage: 100 MILLIGRAM
     Route: 065
     Dates: start: 20131016, end: 201310
  8. KLONOPIN [Suspect]
     Active Substance: CLONAZEPAM
     Dosage: 0.125 MILLIGRAM
     Route: 065
     Dates: start: 20130924
  9. LAMICTAL [Suspect]
     Active Substance: LAMOTRIGINE
     Dosage: 250 MILLIGRAM
     Route: 065
     Dates: start: 201310, end: 201607
  10. KLONOPIN [Suspect]
     Active Substance: CLONAZEPAM
     Indication: DEPRESSED MOOD
     Dosage: 0.5 MILLIGRAM
     Route: 065
     Dates: start: 20130917, end: 201309
  11. KLONOPIN [Suspect]
     Active Substance: CLONAZEPAM
     Dosage: TAPERED
     Route: 065
     Dates: start: 201607, end: 201611
  12. LAMICTAL [Suspect]
     Active Substance: LAMOTRIGINE
     Dosage: 6.25 MILLIGRAM
     Route: 065
     Dates: start: 20130924
  13. LAMICTAL [Suspect]
     Active Substance: LAMOTRIGINE
     Dosage: TAPER BY 12.5 MG EVERY 2 WEEKS
     Route: 065
     Dates: start: 201611

REACTIONS (14)
  - Withdrawal syndrome [Recovered/Resolved]
  - Palpitations [Recovering/Resolving]
  - Body dysmorphic disorder [Recovering/Resolving]
  - Nausea [Recovering/Resolving]
  - Diarrhoea [Recovering/Resolving]
  - Dizziness [Recovering/Resolving]
  - Pneumonia [Recovering/Resolving]
  - Chills [Recovering/Resolving]
  - Flushing [Recovering/Resolving]
  - Sleep disorder [Recovering/Resolving]
  - Headache [Recovering/Resolving]
  - Vertigo [Recovering/Resolving]
  - Exposure during pregnancy [Unknown]
  - Contraindicated product administered [Unknown]
